FAERS Safety Report 19497092 (Version 1)
Quarter: 2021Q3

REPORT INFORMATION
  Report Type: Spontaneous
  Country: US (occurrence: US)
  Receive Date: 20210702
  Receipt Date: 20210702
  Transmission Date: 20211014
  Serious: Yes (Hospitalization)
  Sender: FDA-Public Use
  Company Number: None

PATIENT
  Sex: Male
  Weight: 123.4 kg

DRUGS (2)
  1. TAXOL [Concomitant]
     Active Substance: PACLITAXEL
  2. CARBOPLATIN. [Suspect]
     Active Substance: CARBOPLATIN
     Dates: start: 20210614

REACTIONS (6)
  - Gastrointestinal haemorrhage [None]
  - Asthenia [None]
  - Fatigue [None]
  - Anaemia [None]
  - Faeces discoloured [None]
  - Arteriovenous malformation [None]

NARRATIVE: CASE EVENT DATE: 20210621
